FAERS Safety Report 24349677 (Version 1)
Quarter: 2024Q3

REPORT INFORMATION
  Report Type: Spontaneous
  Country: JP (occurrence: JP)
  Receive Date: 20240923
  Receipt Date: 20240923
  Transmission Date: 20241016
  Serious: Yes (Hospitalization, Other)
  Sender: CSL BEHRING
  Company Number: JP-BEH-2024176471

PATIENT

DRUGS (2)
  1. HIZENTRA [Suspect]
     Active Substance: HUMAN IMMUNOGLOBULIN G
     Indication: Chronic inflammatory demyelinating polyradiculoneuropathy
     Dosage: UNK, QW
     Route: 058
  2. HIZENTRA [Suspect]
     Active Substance: HUMAN IMMUNOGLOBULIN G
     Indication: Immunoglobulin therapy

REACTIONS (5)
  - HIV infection [Unknown]
  - Suspected transmission of an infectious agent via product [Unknown]
  - Hospitalisation [Unknown]
  - Fungal infection [Unknown]
  - Blood beta-D-glucan increased [Unknown]

NARRATIVE: CASE EVENT DATE: 20240728
